FAERS Safety Report 5273799-2 (Version None)
Quarter: 2007Q1

REPORT INFORMATION
  Report Type: 
  Country: None (occurrence: None)
  Receive Date: 20061219
  Receipt Date: 20060906
  Transmission Date: 20070707
  Serious: Yes (Hospitalization)
  Sender: FDA-Public Use
  Company Number: US-JNJFOC-20060901512

PATIENT
  Age: 22 Year
  Sex: Female
  Weight: 54.4316 kg

DRUGS (4)
  1. ORTHO EVRA [Suspect]
     Indication: CONTRACEPTION
     Dosage: TRANSDERMAL
     Route: 062
     Dates: end: 20050506
  2. RELACORE (ALL OTHER THERAPEUTIC PRODUCTS) [Concomitant]
  3. AUGMENTIN '125' [Concomitant]
  4. HYDROCODONE (HYDROCODONE) [Concomitant]

REACTIONS (1)
  - TRANSVERSE SINUS THROMBOSIS [None]
